FAERS Safety Report 17297154 (Version 1)
Quarter: 2020Q1

REPORT INFORMATION
  Report Type: Spontaneous
  Country: US (occurrence: US)
  Receive Date: 20200121
  Receipt Date: 20200121
  Transmission Date: 20200409
  Serious: No
  Sender: FDA-Public Use
  Company Number: US-JNJFOC-20200114754

PATIENT
  Sex: Male
  Weight: 89.89 kg

DRUGS (1)
  1. STELARA [Suspect]
     Active Substance: USTEKINUMAB
     Indication: CROHN^S DISEASE
     Route: 058
     Dates: start: 20180220

REACTIONS (2)
  - Drug level decreased [Unknown]
  - Antibody test abnormal [Unknown]

NARRATIVE: CASE EVENT DATE: 20191204
